FAERS Safety Report 13046119 (Version 1)
Quarter: 2016Q4

REPORT INFORMATION
  Report Type: Spontaneous
  Country: BE (occurrence: BE)
  Receive Date: 20161220
  Receipt Date: 20161220
  Transmission Date: 20170207
  Serious: Yes (Hospitalization, Other)
  Sender: FDA-Public Use
  Company Number: BE-VIIV HEALTHCARE LIMITED-BE2016GSK128486

PATIENT
  Age: 32 Year
  Sex: Male
  Weight: 68 kg

DRUGS (3)
  1. AMOXICILLIN. [Suspect]
     Active Substance: AMOXICILLIN
     Indication: PRODUCT USED FOR UNKNOWN INDICATION
     Dosage: 1000 MG, TID
     Dates: start: 20160821
  2. TRIUMEQ [Suspect]
     Active Substance: ABACAVIR SULFATE\DOLUTEGRAVIR SODIUM\LAMIVUDINE
     Indication: HIV INFECTION
     Dosage: 1 DF, QD
     Route: 048
     Dates: start: 20160812, end: 20160901
  3. DUOVENT [Concomitant]
     Active Substance: FENOTEROL HYDROBROMIDE
     Dosage: UNK

REACTIONS (25)
  - Pyrexia [Recovered/Resolved]
  - Constipation [Unknown]
  - Depression [Unknown]
  - Rash [Unknown]
  - Nervousness [Recovered/Resolved]
  - Anger [Unknown]
  - Cough [Recovered/Resolved]
  - Depressed mood [Recovered/Resolved]
  - Abnormal behaviour [Unknown]
  - Oropharyngeal pain [Recovered/Resolved]
  - Paralysis [Unknown]
  - Muscle spasms [Unknown]
  - Diarrhoea [Unknown]
  - Pharyngitis [Unknown]
  - Normochromic normocytic anaemia [Unknown]
  - Concomitant disease aggravated [Unknown]
  - Hyperventilation [Unknown]
  - Dyspnoea [Recovered/Resolved]
  - Pruritus [Recovered/Resolved]
  - Aggression [Recovered/Resolved]
  - Myalgia [Unknown]
  - Suprapubic pain [Unknown]
  - Tonsillitis [Recovered/Resolved]
  - Abdominal pain lower [Unknown]
  - Psychiatric symptom [Unknown]

NARRATIVE: CASE EVENT DATE: 201608
